FAERS Safety Report 11505736 (Version 4)
Quarter: 2015Q4

REPORT INFORMATION
  Report Type: Spontaneous
  Country: IT (occurrence: IT)
  Receive Date: 20150915
  Receipt Date: 20151218
  Transmission Date: 20160304
  Serious: Yes (Other)
  Sender: FDA-Public Use
  Company Number: IT-ABBVIE-15K-083-1460110-00

PATIENT
  Age: 33 Year
  Sex: Female
  Weight: 80 kg

DRUGS (6)
  1. HUMIRA [Suspect]
     Active Substance: ADALIMUMAB
     Indication: COLITIS ULCERATIVE
     Route: 058
     Dates: start: 20150707, end: 20150707
  2. HUMIRA [Suspect]
     Active Substance: ADALIMUMAB
     Route: 058
     Dates: start: 20150804, end: 20150818
  3. AZATHIOPRINE. [Suspect]
     Active Substance: AZATHIOPRINE
     Indication: PRODUCT USED FOR UNKNOWN INDICATION
     Route: 065
  4. MODURETIC 5-50 [Concomitant]
     Active Substance: AMILORIDE HYDROCHLORIDE\HYDROCHLOROTHIAZIDE
     Indication: HYPERTENSION
     Route: 048
     Dates: start: 20150902
  5. HUMIRA [Suspect]
     Active Substance: ADALIMUMAB
     Route: 058
     Dates: start: 20150720, end: 20150720
  6. CATAPRESAN [Concomitant]
     Active Substance: CLONIDINE
     Indication: HYPERTENSION
     Route: 048
     Dates: start: 20150902

REACTIONS (8)
  - Muscle spasms [Recovered/Resolved]
  - Dermatitis exfoliative [Recovered/Resolved]
  - Alopecia [Recovered/Resolved]
  - Musculoskeletal pain [Recovered/Resolved]
  - Solar dermatitis [Unknown]
  - No therapeutic response [Unknown]
  - Hyperaesthesia [Recovered/Resolved]
  - Onychoclasis [Recovered/Resolved]

NARRATIVE: CASE EVENT DATE: 2015
